FAERS Safety Report 4710807-9 (Version None)
Quarter: 2005Q3

REPORT INFORMATION
  Report Type: 
  Country: None (occurrence: None)
  Receive Date: 20050705
  Receipt Date: 20050620
  Transmission Date: 20060218
  Serious: No
  Sender: FDA-Public Use
  Company Number: SAGL-ZLB/05/61/GFR

PATIENT
  Age: 66 Year
  Sex: Male
  Weight: 60 kg

DRUGS (9)
  1. SANDOGLOBULIN [Suspect]
     Indication: HYPOGAMMAGLOBULINAEMIA
     Dosage: 10 G ONCE IV
     Route: 042
     Dates: start: 20050615, end: 20050615
  2. SANDOGLOBULIN [Suspect]
     Indication: METASTATIC NEOPLASM
     Dosage: 10 G ONCE IV
     Route: 042
     Dates: start: 20050615, end: 20050615
  3. PANTOZOL (PANTORPAZOLE SODIUM) [Concomitant]
  4. LEVOTHYROXINE SODIUM [Concomitant]
  5. CORDAREX (AMIODARONE HYDROCHLORIDE) [Concomitant]
  6. MCP (METOCLOPRAMIDE HYDROCHLORIDE) [Concomitant]
  7. NAC (ACETYLCYSTEINE) [Concomitant]
  8. MUCOSOLVAN (AMBROXOL HYDROCHLORIDE) [Concomitant]
  9. FRAXIPARIN (HEPARIN-FRACTION, CALCIUM SALT [Concomitant]

REACTIONS (4)
  - BLOOD PRESSURE INCREASED [None]
  - DYSPNOEA [None]
  - HEART RATE INCREASED [None]
  - NAUSEA [None]
